FAERS Safety Report 12291040 (Version 1)
Quarter: 2016Q2

REPORT INFORMATION
  Report Type: Spontaneous
  Country: US (occurrence: US)
  Receive Date: 20160421
  Receipt Date: 20160421
  Transmission Date: 20160815
  Serious: Yes (Other)
  Sender: FDA-Public Use
  Company Number: US-BRISTOL-MYERS SQUIBB COMPANY-BMS-2016-028080

PATIENT
  Sex: Male
  Weight: 106.58 kg

DRUGS (1)
  1. ELIQUIS [Suspect]
     Active Substance: APIXABAN
     Indication: CEREBROVASCULAR ACCIDENT PROPHYLAXIS
     Dosage: 2.5 MG, BID
     Route: 048

REACTIONS (9)
  - Arthritis [Unknown]
  - Contusion [Unknown]
  - Asthenia [Unknown]
  - Headache [Unknown]
  - Sleep disorder [Unknown]
  - Pigmentation disorder [Unknown]
  - Feeling abnormal [Unknown]
  - Limb discomfort [Unknown]
  - Haemorrhage [Unknown]
